FAERS Safety Report 20231873 (Version 2)
Quarter: 2022Q1

REPORT INFORMATION
  Report Type: Spontaneous
  Country: PE (occurrence: None)
  Receive Date: 20211227
  Receipt Date: 20220209
  Transmission Date: 20220423
  Serious: Yes (Death, Hospitalization)
  Sender: FDA-Public Use
  Company Number: PE-ROCHE-2986567

PATIENT
  Sex: Female

DRUGS (1)
  1. MABTHERA [Suspect]
     Active Substance: RITUXIMAB
     Indication: Breast cancer
     Dosage: FREQUENCY WAS NOT REPORTED
     Route: 042
     Dates: start: 20210322

REACTIONS (3)
  - Autoimmune haemolytic anaemia [Unknown]
  - Haemoglobin decreased [Fatal]
  - General physical health deterioration [Fatal]
